FAERS Safety Report 4269613-4 (Version None)
Quarter: 2004Q1

REPORT INFORMATION
  Report Type: 
  Country: None (occurrence: None)
  Receive Date: 20040112
  Receipt Date: 20031229
  Transmission Date: 20041129
  Serious: Yes (Hospitalization)
  Sender: FDA-Public Use
  Company Number: RENA-10709

PATIENT
  Age: 51 Year
  Sex: Female

DRUGS (11)
  1. RENAGEL [Suspect]
     Indication: HYPERPHOSPHATAEMIA
     Dosage: 3 G QD PO
     Dates: start: 20030706, end: 20030724
  2. RENAGEL [Suspect]
     Indication: HYPERPHOSPHATAEMIA
     Dosage: 0.75 G QD PO
     Dates: start: 20030810, end: 20031020
  3. CALCIUM CARBONATE [Concomitant]
  4. DIAZEPAM [Concomitant]
  5. GASTER [Concomitant]
  6. EPOGIN [Concomitant]
  7. ELCITONIN [Concomitant]
  8. LOXONIN [Concomitant]
  9. SELBEX [Concomitant]
  10. TAKEPRON [Concomitant]
  11. PL GRAN [Concomitant]

REACTIONS (4)
  - ABDOMINAL DISTENSION [None]
  - ABDOMINAL PAIN UPPER [None]
  - INTESTINAL OBSTRUCTION [None]
  - NAUSEA [None]
